FAERS Safety Report 21723846 (Version 1)
Quarter: 2022Q4

REPORT INFORMATION
  Report Type: Spontaneous
  Country: US (occurrence: US)
  Receive Date: 20221213
  Receipt Date: 20221213
  Transmission Date: 20230113
  Serious: No
  Sender: FDA-Public Use
  Company Number: US-MYLANLABS-2022M1127665

PATIENT
  Age: 67 Year
  Sex: Female

DRUGS (3)
  1. VIAGRA [Suspect]
     Active Substance: SILDENAFIL CITRATE
     Indication: Ill-defined disorder
     Dosage: UNK
     Route: 065
  2. ESTRADIOL [Concomitant]
     Active Substance: ESTRADIOL
     Dosage: 25 MILLIGRAM(25MG EVERY 14 DAYS)
     Route: 065
     Dates: start: 1998
  3. TESTOSTERONE CYPIONATE [Concomitant]
     Active Substance: TESTOSTERONE CYPIONATE
     Dosage: 25MG PER ML TAKES HALF ON THE 1ST MONTH AND HALF ON THE 15TH OF THE MONTH
     Route: 065
     Dates: start: 1998

REACTIONS (1)
  - Off label use [Unknown]
